FAERS Safety Report 4426763-7 (Version None)
Quarter: 2004Q3

REPORT INFORMATION
  Report Type: 
  Country: None (occurrence: None)
  Receive Date: 20040811
  Receipt Date: 20040727
  Transmission Date: 20050211
  Serious: Yes (Hospitalization)
  Sender: FDA-Public Use
  Company Number: 202056

PATIENT
  Age: 46 Year
  Sex: Female
  Weight: 106.5953 kg

DRUGS (9)
  1. AVONEX [Suspect]
     Indication: MULTIPLE SCLEROSIS
     Dosage: 30 MCG QW IM
     Route: 030
     Dates: start: 19960101, end: 20040501
  2. AVONEX [Suspect]
     Indication: MULTIPLE SCLEROSIS
     Dosage: 30 MCG QW IM
     Route: 030
     Dates: start: 20040501, end: 20040601
  3. BUMEX [Concomitant]
  4. DYNACIRC [Concomitant]
  5. DIOVAN [Concomitant]
  6. ALTACE [Concomitant]
  7. REMERON [Concomitant]
  8. TRAZODONE HCL [Concomitant]
  9. LORAZEPAM [Concomitant]

REACTIONS (8)
  - CONDITION AGGRAVATED [None]
  - CONTUSION [None]
  - ECONOMIC PROBLEM [None]
  - FALL [None]
  - MULTIPLE SCLEROSIS [None]
  - SPINAL DISORDER [None]
  - STRESS SYMPTOMS [None]
  - VISUAL DISTURBANCE [None]
